FAERS Safety Report 7077848-0 (Version None)
Quarter: 2010Q4

REPORT INFORMATION
  Report Type: 
  Country: None (occurrence: None)
  Receive Date: 20101101
  Receipt Date: 20101020
  Transmission Date: 20110411
  Serious: Yes (Life-Threatening, Other)
  Sender: FDA-Public Use
  Company Number: US-CELGENEUS-163-21880-10070637

PATIENT
  Sex: Female

DRUGS (2)
  1. REVLIMID [Suspect]
     Route: 048
     Dates: start: 20081223, end: 20100225
  2. REVLIMID [Suspect]
     Route: 048
     Dates: start: 20100301

REACTIONS (1)
  - DEEP VEIN THROMBOSIS [None]
